FAERS Safety Report 15215092 (Version 1)
Quarter: 2018Q3

REPORT INFORMATION
  Report Type: Report from Study
  Country: BR (occurrence: BR)
  Receive Date: 20180730
  Receipt Date: 20180730
  Transmission Date: 20181010
  Serious: Yes (Hospitalization, Other)
  Sender: FDA-Public Use
  Company Number: BR-JNJFOC-20180702663

PATIENT
  Sex: Female
  Weight: 95 kg

DRUGS (5)
  1. PURAN [Concomitant]
     Active Substance: LEVOTHYROXINE SODIUM
     Route: 065
  2. METHADONE [Concomitant]
     Active Substance: METHADONE HYDROCHLORIDE
  3. SIMPONI [Suspect]
     Active Substance: GOLIMUMAB
     Indication: ANKYLOSING SPONDYLITIS
     Route: 058
     Dates: start: 20161004
  4. RIVOTRIL [Concomitant]
     Active Substance: CLONAZEPAM
     Indication: SLEEP DISORDER
     Route: 065
  5. FLUOXETINE [Concomitant]
     Active Substance: FLUOXETINE HYDROCHLORIDE
     Route: 065

REACTIONS (3)
  - Ankylosing spondylitis [Unknown]
  - Surgery [Unknown]
  - Infection [Not Recovered/Not Resolved]
